FAERS Safety Report 8921798 (Version 1)
Quarter: 2012Q4

REPORT INFORMATION
  Report Type: 
  Country: US (occurrence: US)
  Receive Date: 20121121
  Receipt Date: 20121121
  Transmission Date: 20130627
  Serious: Yes (Hospitalization)
  Sender: FDA-Public Use
  Company Number: US-JNJFOC-20121106430

PATIENT
  Sex: Female
  Weight: 79.38 kg

DRUGS (4)
  1. NIZORAL [Suspect]
     Route: 065
  2. NIZORAL [Suspect]
     Indication: SEBORRHOEA
     Dosage: 10-15 years ago
     Route: 065
  3. KETOCONAZOLE [Suspect]
     Route: 062
  4. KETOCONAZOLE [Suspect]
     Indication: SEBORRHOEA
     Dosage: every 2-3 days
     Route: 062

REACTIONS (8)
  - Fall [Recovered/Resolved]
  - Hip fracture [Unknown]
  - Pelvic fracture [Unknown]
  - Unevaluable event [Recovered/Resolved]
  - Hair texture abnormal [Not Recovered/Not Resolved]
  - Expired drug administered [Unknown]
  - Weight decreased [Not Recovered/Not Resolved]
  - Off label use [Not Recovered/Not Resolved]
